FAERS Safety Report 7759520-4 (Version None)
Quarter: 2011Q3

REPORT INFORMATION
  Report Type: 
  Country: None (occurrence: None)
  Receive Date: 20110919
  Receipt Date: 20110919
  Transmission Date: 20111222
  Serious: Yes (Hospitalization)
  Sender: FDA-Public Use
  Company Number: None

PATIENT
  Age: 62 Year
  Sex: Female
  Weight: 81.646 kg

DRUGS (1)
  1. YOHIMBE [Suspect]
     Indication: LIBIDO DISORDER
     Dosage: 112.5 MG
     Route: 048
     Dates: start: 20110909, end: 20110909

REACTIONS (6)
  - PALPITATIONS [None]
  - NAUSEA [None]
  - COLD SWEAT [None]
  - VISION BLURRED [None]
  - BLOOD PRESSURE INCREASED [None]
  - TREMOR [None]
